FAERS Safety Report 6959125-9 (Version None)
Quarter: 2010Q3

REPORT INFORMATION
  Report Type: 
  Country: None (occurrence: None)
  Receive Date: 20100831
  Receipt Date: 20100818
  Transmission Date: 20110219
  Serious: Yes (Hospitalization, Other)
  Sender: FDA-Public Use
  Company Number: US-ELI_LILLY_AND_COMPANY-US201005006839

PATIENT
  Sex: Male

DRUGS (8)
  1. FORTEO [Suspect]
     Indication: OSTEOPOROSIS
     Dosage: 20 UG, DAILY (1/D)
     Dates: start: 20100301
  2. EFFEXOR [Concomitant]
  3. KLONOPIN [Concomitant]
  4. COMBIGAN [Concomitant]
     Indication: GLAUCOMA
     Route: 047
  5. XALATAN [Concomitant]
     Indication: GLAUCOMA
     Route: 047
  6. LIPITOR [Concomitant]
  7. PROSTATIN                          /00672301/ [Concomitant]
  8. SODIUM PHOSPHATES [Concomitant]

REACTIONS (10)
  - APHASIA [None]
  - BACK PAIN [None]
  - CONSTIPATION [None]
  - DYSPHAGIA [None]
  - FINE MOTOR DELAY [None]
  - HEMIPLEGIA [None]
  - ISCHAEMIC STROKE [None]
  - MUSCLE SPASMS [None]
  - MUSCULAR WEAKNESS [None]
  - MYALGIA [None]
